FAERS Safety Report 5651718-4 (Version None)
Quarter: 2008Q1

REPORT INFORMATION
  Report Type: 
  Country: None (occurrence: None)
  Receive Date: 20080305
  Receipt Date: 20080222
  Transmission Date: 20080703
  Serious: Yes (Hospitalization)
  Sender: FDA-Public Use
  Company Number: CA-PFIZER INC-2007086551

PATIENT
  Sex: Male
  Weight: 80 kg

DRUGS (9)
  1. SU-011,248 [Suspect]
     Indication: METASTATIC RENAL CELL CARCINOMA
     Route: 048
  2. SU-011,248 [Suspect]
     Route: 048
  3. OMEGA-3 [Concomitant]
     Route: 048
  4. ELTROXIN [Concomitant]
     Route: 048
  5. LOPERAMIDE HCL [Concomitant]
     Route: 048
  6. NEXIUM [Concomitant]
     Route: 048
     Dates: start: 20070726, end: 20071013
  7. NASONEX [Concomitant]
     Route: 045
     Dates: start: 20070822, end: 20080122
  8. LORATADINE [Concomitant]
     Route: 048
  9. ATACAND [Concomitant]
     Route: 048

REACTIONS (14)
  - BACK PAIN [None]
  - BLOOD CREATININE INCREASED [None]
  - CHEST PAIN [None]
  - COUGH [None]
  - DIARRHOEA [None]
  - DYSGEUSIA [None]
  - EYE SWELLING [None]
  - FATIGUE [None]
  - HAIR COLOUR CHANGES [None]
  - MUSCULOSKELETAL PAIN [None]
  - PERIANAL ABSCESS [None]
  - POSTNASAL DRIP [None]
  - SWELLING FACE [None]
  - WEIGHT DECREASED [None]
